FAERS Safety Report 11360096 (Version 1)
Quarter: 2015Q3

REPORT INFORMATION
  Report Type: Spontaneous
  Country: US (occurrence: US)
  Receive Date: 20150810
  Receipt Date: 20150810
  Transmission Date: 20151125
  Serious: Yes (Other)
  Sender: FDA-Public Use
  Company Number: US-ELI_LILLY_AND_COMPANY-US201507010474

PATIENT
  Sex: Male

DRUGS (1)
  1. ZYPREXA ZYDIS [Suspect]
     Active Substance: OLANZAPINE
     Indication: BIPOLAR DISORDER
     Dosage: 5 MG, QD
     Route: 065
     Dates: start: 201501

REACTIONS (2)
  - Alanine aminotransferase increased [Unknown]
  - Aspartate aminotransferase increased [Unknown]
